FAERS Safety Report 15538516 (Version 1)
Quarter: 2018Q4

REPORT INFORMATION
  Report Type: Spontaneous
  Country: FR (occurrence: FR)
  Receive Date: 20181022
  Receipt Date: 20181022
  Transmission Date: 20190205
  Serious: Yes (Hospitalization)
  Sender: FDA-Public Use
  Company Number: FR-MYLANLABS-2018M1078523

PATIENT
  Age: 75 Year
  Sex: Male

DRUGS (6)
  1. UROMITEXAN [Suspect]
     Active Substance: MESNA
     Indication: LYMPHOMA
     Dosage: NON RENSEIGN?E
     Route: 042
  2. TRUXIMA [Suspect]
     Active Substance: RITUXIMAB-ABBS
     Indication: LYMPHOMA
     Dosage: 690 MG, CYCLE (690 MG ET 660 MG PAR CYCLE)
     Route: 042
     Dates: start: 20170717
  3. ETOPOSIDE MYLAN [Suspect]
     Active Substance: ETOPOSIDE
     Indication: LYMPHOMA
     Dosage: 131 MG, CYCLE
     Route: 042
     Dates: start: 20170717
  4. ZOPHREN                            /00955301/ [Interacting]
     Active Substance: ONDANSETRON
     Indication: VOMITING
     Dosage: NON RENSEIGN?E
     Route: 042
  5. CARBOPLATINE [Suspect]
     Active Substance: CARBOPLATIN
     Indication: LYMPHOMA
     Dosage: 365 MG, CYCLE (365 MG ET 380 MG PAR CYCLE)
     Route: 042
     Dates: start: 20170718
  6. IFOSFAMIDE EG [Suspect]
     Active Substance: IFOSFAMIDE
     Indication: LYMPHOMA
     Dosage: 6600 MG, CYCLE
     Route: 042
     Dates: start: 20170719

REACTIONS (2)
  - Drug interaction [Unknown]
  - Encephalopathy [Recovered/Resolved]

NARRATIVE: CASE EVENT DATE: 20170719
